FAERS Safety Report 6867271-3 (Version None)
Quarter: 2010Q3

REPORT INFORMATION
  Report Type: 
  Country: None (occurrence: None)
  Receive Date: 20100722
  Receipt Date: 20100709
  Transmission Date: 20110219
  Serious: Yes (Death)
  Sender: FDA-Public Use
  Company Number: DE-ELI_LILLY_AND_COMPANY-DE201005000425

PATIENT
  Sex: Female

DRUGS (7)
  1. ZYPREXA [Suspect]
     Indication: SCHIZOPHRENIA
     Dosage: 20 MG, UNK
     Route: 048
  2. PERAZINE [Concomitant]
     Dosage: 200 MG, DAILY (1/D)
  3. LORMETAZEPAM [Concomitant]
     Dosage: 2 MG, UNK
  4. ZOLOFT [Concomitant]
     Dosage: 100 MG, 2/D
  5. DIPIPERON [Concomitant]
     Dosage: 40 MG, EACH EVENING
  6. CARBAMAZEPINE [Concomitant]
     Dosage: 200 MG, 2/D
  7. HALCION [Concomitant]
     Dosage: UNK, AS NEEDED

REACTIONS (1)
  - DEATH [None]
